FAERS Safety Report 21762638 (Version 2)
Quarter: 2022Q4

REPORT INFORMATION
  Report Type: Report from Study
  Country: JP (occurrence: JP)
  Receive Date: 20221221
  Receipt Date: 20221223
  Transmission Date: 20230113
  Serious: Yes (Hospitalization, Other)
  Sender: FDA-Public Use
  Company Number: JP-ONO-2022JP033659

PATIENT
  Age: 60 Year
  Weight: 68.4 kg

DRUGS (20)
  1. BRAFTOVI [Suspect]
     Active Substance: ENCORAFENIB
     Indication: Colon cancer
     Dosage: 300 MG, EVERYDAY
     Route: 048
     Dates: start: 20221110, end: 20221207
  2. MEKTOVI [Suspect]
     Active Substance: BINIMETINIB
     Indication: Colon cancer
     Dosage: 90 MG, EVERYDAY
     Route: 048
     Dates: start: 20221110, end: 20221207
  3. ANAMORELIN HYDROCHLORIDE [Suspect]
     Active Substance: ANAMORELIN HYDROCHLORIDE
     Indication: Cachexia
     Dosage: 100 MG, EVERYDAY
     Route: 048
  4. CETUXIMAB [Suspect]
     Active Substance: CETUXIMAB
     Indication: Colon cancer
     Dosage: 250 MG
     Route: 065
     Dates: start: 20221110, end: 20221124
  5. ASPIRIN [Concomitant]
     Active Substance: ASPIRIN
     Dosage: 100 MG, EVERYDAY
     Route: 048
  6. REBAMIPIDE [Concomitant]
     Active Substance: REBAMIPIDE
     Dosage: 100 MG
     Route: 048
  7. ROSUVASTATIN CALCIUM [Concomitant]
     Active Substance: ROSUVASTATIN CALCIUM
     Dosage: 5 MG, EVERYDAY
     Route: 048
  8. SHAKUYAKUKANZOTO [Concomitant]
     Active Substance: HERBALS
     Dosage: 2.5 G, Q8H
     Route: 065
  9. NASONEX [Concomitant]
     Active Substance: MOMETASONE FUROATE
     Dosage: UNK, 2 SPRAYS PER DOSE[NASAL DROP (NASAL SPRAY TOO)]
     Route: 045
  10. URIEF OD [Concomitant]
     Dosage: 4 MG, Q12H
     Route: 048
  11. VIBEGRON [Concomitant]
     Active Substance: VIBEGRON
     Dosage: 50 MG, EVERYDAY
     Route: 048
  12. SODIUM GUALENATE MONOHYDRATE [Concomitant]
     Active Substance: SODIUM GUALENATE MONOHYDRATE
     Dosage: UNK
     Route: 065
  13. GLYCOSAMINOGLYCANS [Concomitant]
     Active Substance: GLYCOSAMINOGLYCANS
     Dosage: UNK [LOTION (EXCEPT LOTION FOR EYE]
     Route: 061
  14. CLOBETASOL [Concomitant]
     Active Substance: CLOBETASOL
     Dosage: UNK [OINTMENT, CREAM]
     Route: 061
  15. VIBRAMYCIN [DOXYCYCLINE HYDROCHLORIDE] [Concomitant]
     Dosage: 100 MG, EVERYDAY
     Route: 048
  16. LIORESAL [Concomitant]
     Active Substance: BACLOFEN
     Dosage: 10 MG, Q8H
     Route: 048
  17. CELECOXIB [Concomitant]
     Active Substance: CELECOXIB
     Dosage: 200 MG, Q12H
     Route: 048
  18. AVELOX [Concomitant]
     Active Substance: MOXIFLOXACIN HYDROCHLORIDE
     Dosage: 400 MG, EVERYDAY
     Route: 048
  19. HYDREA [Concomitant]
     Active Substance: HYDROXYUREA
     Dosage: 1000 MG, Q12H
     Route: 048
  20. LANSOPRAZOLE [Concomitant]
     Active Substance: LANSOPRAZOLE
     Dosage: 15 MG, EVERYDAY
     Route: 048

REACTIONS (5)
  - Dehydration [Unknown]
  - Renal impairment [Unknown]
  - Stomatitis [Recovered/Resolved]
  - Oropharyngeal pain [Unknown]
  - Dry skin [Unknown]

NARRATIVE: CASE EVENT DATE: 20221124
